FAERS Safety Report 13780734 (Version 1)
Quarter: 2017Q3

REPORT INFORMATION
  Report Type: Spontaneous
  Country: US (occurrence: US)
  Receive Date: 20170724
  Receipt Date: 20170724
  Transmission Date: 20171127
  Serious: No
  Sender: FDA-Public Use
  Company Number: US-PFIZER INC-2017319841

PATIENT
  Sex: Female

DRUGS (1)
  1. NEURONTIN [Suspect]
     Active Substance: GABAPENTIN
     Dosage: 100 MG, UNK

REACTIONS (8)
  - Joint range of motion decreased [Unknown]
  - Arthralgia [Unknown]
  - Nausea [Unknown]
  - Musculoskeletal stiffness [Unknown]
  - Pain [Unknown]
  - Condition aggravated [Unknown]
  - Limb discomfort [Unknown]
  - Neck pain [Unknown]
